FAERS Safety Report 16541977 (Version 1)
Quarter: 2019Q3

REPORT INFORMATION
  Report Type: Spontaneous
  Country: AR (occurrence: AR)
  Receive Date: 20190708
  Receipt Date: 20190708
  Transmission Date: 20191004
  Serious: Yes (Other)
  Sender: FDA-Public Use
  Company Number: AR-MYLANLABS-2019M1054246

PATIENT
  Age: 21 Year
  Sex: Male

DRUGS (2)
  1. LAPENAX [Suspect]
     Active Substance: CLOZAPINE
     Indication: PSYCHOTIC DISORDER
     Dosage: UNK
     Dates: start: 20180129
  2. LAPENAX [Suspect]
     Active Substance: CLOZAPINE
     Dosage: UNK
     Dates: start: 20180629

REACTIONS (2)
  - White blood cell count increased [Recovered/Resolved]
  - Neutropenia [Unknown]

NARRATIVE: CASE EVENT DATE: 20190524
